FAERS Safety Report 4896321-9 (Version None)
Quarter: 2006Q1

REPORT INFORMATION
  Report Type: 
  Country: None (occurrence: None)
  Receive Date: 20060126
  Receipt Date: 20060119
  Transmission Date: 20060701
  Serious: No
  Sender: FDA-Public Use
  Company Number: 2005BI021960

PATIENT
  Age: 28 Year
  Sex: Female

DRUGS (5)
  1. AVONEX [Suspect]
     Indication: MULTIPLE SCLEROSIS
     Dosage: 30 UG, QW; IM
     Route: 030
     Dates: start: 20051123
  2. PLAQUENIL [Concomitant]
  3. SULINDAC [Concomitant]
  4. PERCOCET [Concomitant]
  5. COLACE [Concomitant]

REACTIONS (2)
  - MUSCLE SPASMS [None]
  - SWELLING [None]
